FAERS Safety Report 10256743 (Version 1)
Quarter: 2014Q2

REPORT INFORMATION
  Report Type: Report from Study
  Country: SI (occurrence: SI)
  Receive Date: 20140624
  Receipt Date: 20140624
  Transmission Date: 20141212
  Serious: Yes (Other)
  Sender: FDA-Public Use
  Company Number: SI-JNJFOC-20140115018

PATIENT
  Age: 70 Year
  Sex: Female

DRUGS (5)
  1. RIVAROXABAN [Suspect]
     Indication: ATRIAL FIBRILLATION
     Route: 048
     Dates: start: 20131016
  2. RIVAROXABAN [Suspect]
     Indication: CEREBROVASCULAR ACCIDENT PROPHYLAXIS
     Route: 048
     Dates: start: 20131016
  3. RYTMONORMA [Concomitant]
     Route: 065
     Dates: start: 20131016
  4. FRAGMIN [Concomitant]
     Dosage: 12500 IE MG
     Route: 065
     Dates: start: 20131122
  5. CONCOR COR [Concomitant]
     Route: 065

REACTIONS (2)
  - Transient ischaemic attack [Recovered/Resolved]
  - Gingival bleeding [Recovered/Resolved]
